FAERS Safety Report 19295787 (Version 2)
Quarter: 2021Q3

REPORT INFORMATION
  Report Type: Spontaneous
  Country: JP (occurrence: JP)
  Receive Date: 20210524
  Receipt Date: 20210721
  Transmission Date: 20211014
  Serious: Yes (Hospitalization, Other)
  Sender: FDA-Public Use
  Company Number: JP-PFIZER INC-2021528035

PATIENT
  Age: 72 Year
  Sex: Female
  Weight: 47 kg

DRUGS (9)
  1. ADONA [CARBAZOCHROME SODIUM SULFONATE] [Concomitant]
     Active Substance: CARBAZOCHROME SODIUM SULFONATE
     Dosage: 50 MG, 1X/DAY
     Route: 041
     Dates: start: 20210213, end: 20210213
  2. HEPARIN MOCHIDA [Concomitant]
     Dosage: UNK
     Dates: start: 20210213, end: 20210218
  3. BICANATE [Concomitant]
     Active Substance: CALCIUM CHLORIDE\MAGNESIUM CHLORIDE\POTASSIUM CHLORIDE\SODIUM BICARBONATE\SODIUM CHLORIDE\TRISODIUM CITRATE DIHYDRATE
     Dosage: 500 ML, 1X/DAY
     Dates: start: 20210213, end: 20210213
  4. UNASYN?S 3G [Suspect]
     Active Substance: AMPICILLIN SODIUM\SULBACTAM SODIUM
     Indication: MEDIASTINITIS
  5. OMEPRAZOLE [OMEPRAZOLE SODIUM] [Concomitant]
     Active Substance: OMEPRAZOLE SODIUM
     Dosage: 20 MG, 2X/DAY
     Dates: start: 20210213, end: 20210215
  6. FENTANYL [FENTANYL CITRATE] [Concomitant]
     Active Substance: FENTANYL CITRATE
     Dosage: 1 MG, 1X/DAY
     Dates: start: 20210213, end: 20210213
  7. DECADRON (DEXAMETHASONE SODIUM PHOSPHATE) [Concomitant]
     Active Substance: DEXAMETHASONE SODIUM PHOSPHATE
     Dosage: 3.3 MG, 1X/DAY
     Dates: start: 20210213, end: 20210213
  8. REMIFENTANIL [REMIFENTANIL HYDROCHLORIDE] [Concomitant]
     Active Substance: REMIFENTANIL HYDROCHLORIDE
     Dosage: 4 MG, 1X/DAY
     Dates: start: 20210213, end: 20210213
  9. UNASYN?S 3G [Suspect]
     Active Substance: AMPICILLIN SODIUM\SULBACTAM SODIUM
     Indication: ABSCESS NECK
     Dosage: 3 G, 4X/DAY
     Route: 041
     Dates: start: 20210213, end: 20210219

REACTIONS (3)
  - Off label use [Unknown]
  - Thrombocytopenia [Recovered/Resolved]
  - Disseminated intravascular coagulation [Recovered/Resolved]

NARRATIVE: CASE EVENT DATE: 20210213
